FAERS Safety Report 22192924 (Version 1)
Quarter: 2023Q2

REPORT INFORMATION
  Report Type: Spontaneous
  Country: MA (occurrence: MA)
  Receive Date: 20230410
  Receipt Date: 20230410
  Transmission Date: 20230722
  Serious: Yes (Life-Threatening, Hospitalization, Other)
  Sender: FDA-Public Use
  Company Number: MA-MLMSERVICE-20230329-4192359-4

PATIENT
  Age: 70 Year
  Sex: Female

DRUGS (1)
  1. ZYPREXA [Suspect]
     Active Substance: OLANZAPINE
     Indication: Depression
     Route: 065

REACTIONS (4)
  - Pulmonary arterial hypertension [Unknown]
  - Systolic dysfunction [Unknown]
  - Right ventricular dilatation [Unknown]
  - Pulmonary embolism [Unknown]
